FAERS Safety Report 4502357-X (Version None)
Quarter: 2004Q4

REPORT INFORMATION
  Report Type: 
  Country: None (occurrence: None)
  Receive Date: 20041110
  Receipt Date: 20041102
  Transmission Date: 20050328
  Serious: Yes (Hospitalization, Other)
  Sender: FDA-Public Use
  Company Number: 2004076305

PATIENT
  Age: 58 Year
  Sex: Female

DRUGS (2)
  1. ATARAX [Suspect]
     Indication: INSOMNIA
     Dosage: 25 MG (25 MG, 1 IN 1 D), ORAL
     Route: 048
     Dates: start: 20040831
  2. BROMAZEPAM (BROMAZEPAM) [Concomitant]

REACTIONS (8)
  - DERMATITIS EXFOLIATIVE [None]
  - DRY SKIN [None]
  - ERYTHEMA [None]
  - PRURITUS [None]
  - PYREXIA [None]
  - RASH MACULO-PAPULAR [None]
  - RENAL FAILURE [None]
  - SHOCK [None]
